FAERS Safety Report 4280080-7 (Version None)
Quarter: 2004Q1

REPORT INFORMATION
  Report Type: 
  Country: None (occurrence: None)
  Receive Date: 20040123
  Receipt Date: 20040115
  Transmission Date: 20041129
  Serious: Yes (Hospitalization)
  Sender: FDA-Public Use
  Company Number: 2004CG00110

PATIENT
  Age: 77 Year
  Sex: Male
  Weight: 66 kg

DRUGS (2)
  1. MOPRAL [Suspect]
     Dosage: 20 MG QD PO
     Route: 048
     Dates: start: 20030616, end: 20030619
  2. MOPRAL [Suspect]
     Dosage: 40 MG QD IV
     Route: 042
     Dates: start: 20030620, end: 20030623

REACTIONS (2)
  - COMA [None]
  - LEUKOPENIA [None]
